FAERS Safety Report 12285352 (Version 4)
Quarter: 2016Q2

REPORT INFORMATION
  Report Type: Spontaneous
  Country: GB (occurrence: GB)
  Receive Date: 20160420
  Receipt Date: 20160621
  Transmission Date: 20160815
  Serious: Yes (Hospitalization, Other)
  Sender: FDA-Public Use
  Company Number: GB-AMGEN-GBRSP2016016818

PATIENT
  Sex: Male

DRUGS (7)
  1. XGEVA [Suspect]
     Active Substance: DENOSUMAB
     Indication: PRODUCT USED FOR UNKNOWN INDICATION
     Dosage: 120 MG,
     Route: 065
  2. PEMETREXED [Concomitant]
     Active Substance: PEMETREXED
     Dosage: 1050 MG, UNK
  3. APREPITANT. [Concomitant]
     Active Substance: APREPITANT
     Dosage: UNK
  4. AVASTIN [Concomitant]
     Active Substance: BEVACIZUMAB
     Dosage: 675 MG, UNK
  5. CISPLATIN. [Concomitant]
     Active Substance: CISPLATIN
     Dosage: 156 MG, UNK
  6. OMEPRAZOLE. [Concomitant]
     Active Substance: OMEPRAZOLE
     Dosage: UNK
  7. NEULASTA [Concomitant]
     Active Substance: PEGFILGRASTIM

REACTIONS (20)
  - Adverse event [Unknown]
  - Rhinorrhoea [Not Recovered/Not Resolved]
  - Joint swelling [Unknown]
  - Lethargy [Unknown]
  - Decreased appetite [Unknown]
  - Cough [Recovering/Resolving]
  - Fatigue [Unknown]
  - Lacrimation increased [Not Recovered/Not Resolved]
  - Neuropathy peripheral [Not Recovered/Not Resolved]
  - Dysgeusia [Unknown]
  - Headache [Unknown]
  - Epistaxis [Not Recovered/Not Resolved]
  - Constipation [Unknown]
  - Flushing [Unknown]
  - Haemorrhoidal haemorrhage [Recovering/Resolving]
  - Insomnia [Unknown]
  - Paraesthesia [Not Recovered/Not Resolved]
  - Dyspnoea exertional [Not Recovered/Not Resolved]
  - Back pain [Unknown]
  - Gastrointestinal haemorrhage [Unknown]
